FAERS Safety Report 21996345 (Version 1)
Quarter: 2023Q1

REPORT INFORMATION
  Report Type: Spontaneous
  Country: CN (occurrence: CN)
  Receive Date: 20230215
  Receipt Date: 20230215
  Transmission Date: 20230418
  Serious: Yes (Other)
  Sender: FDA-Public Use
  Company Number: CN-009507513-2302CHN003500

PATIENT
  Sex: Female
  Weight: 52.3 kg

DRUGS (3)
  1. JANUVIA [Suspect]
     Active Substance: SITAGLIPTIN PHOSPHATE
     Indication: Diabetes mellitus
     Dosage: 100 MG QD
     Route: 048
     Dates: start: 20200907, end: 20221115
  2. JANUVIA [Suspect]
     Active Substance: SITAGLIPTIN PHOSPHATE
     Dosage: 100 MG
     Route: 048
     Dates: start: 20221220
  3. JANUVIA [Suspect]
     Active Substance: SITAGLIPTIN PHOSPHATE
     Dosage: 100 MG
     Dates: start: 20221226

REACTIONS (3)
  - Diabetes mellitus [Unknown]
  - Arthralgia [Recovering/Resolving]
  - Spinal osteoarthritis [Unknown]

NARRATIVE: CASE EVENT DATE: 20201003
